FAERS Safety Report 7965302-0 (Version None)
Quarter: 2011Q4

REPORT INFORMATION
  Report Type: 
  Country: None (occurrence: None)
  Receive Date: 20111206
  Receipt Date: 20111206
  Transmission Date: 20120403
  Serious: No
  Sender: FDA-Public Use
  Company Number: None

PATIENT
  Sex: Female

DRUGS (1)
  1. ENBREL [Suspect]
     Indication: RHEUMATOID ARTHRITIS
     Dosage: 50 MG QW SQ
     Route: 058
     Dates: start: 20110524, end: 20111130

REACTIONS (6)
  - INJECTION SITE SWELLING [None]
  - INJECTION SITE RASH [None]
  - INJECTION SITE PRURITUS [None]
  - DRUG INEFFECTIVE [None]
  - NIGHT SWEATS [None]
  - INJECTION SITE ERYTHEMA [None]
